FAERS Safety Report 18818731 (Version 2)
Quarter: 2021Q1

REPORT INFORMATION
  Report Type: Spontaneous
  Country: JP (occurrence: JP)
  Receive Date: 20210202
  Receipt Date: 20210317
  Transmission Date: 20210419
  Serious: Yes (Other)
  Sender: FDA-Public Use
  Company Number: JP-LUPIN PHARMACEUTICALS INC.-2021-00846

PATIENT
  Age: 28 Year
  Sex: Female

DRUGS (2)
  1. METHYLDOPA. [Suspect]
     Active Substance: METHYLDOPA
     Indication: HYPERTENSION
     Dosage: UNK
     Route: 065
  2. AMLODIPINE [Suspect]
     Active Substance: AMLODIPINE BESYLATE
     Indication: HYPERTENSION
     Dosage: UNK UNK, QD (TOTAL AMLODIPINE DOSE WAS 25 MG)
     Route: 065

REACTIONS (2)
  - Premature delivery [Unknown]
  - Exposure during pregnancy [Unknown]
